FAERS Safety Report 4560411-0 (Version None)
Quarter: 2005Q1

REPORT INFORMATION
  Report Type: 
  Country: None (occurrence: None)
  Receive Date: 20050125
  Receipt Date: 20050117
  Transmission Date: 20050727
  Serious: Yes (Other)
  Sender: FDA-Public Use
  Company Number: JP-MERCK-0501USA03208

PATIENT

DRUGS (1)
  1. PEPCID RPD [Suspect]
     Route: 048

REACTIONS (1)
  - DEAFNESS [None]
